FAERS Safety Report 8011360-7 (Version None)
Quarter: 2011Q4

REPORT INFORMATION
  Report Type: 
  Country: None (occurrence: None)
  Receive Date: 20111228
  Receipt Date: 20111228
  Transmission Date: 20120403
  Serious: Yes (Other)
  Sender: FDA-Public Use
  Company Number: None

PATIENT
  Age: 54 Year
  Sex: Female
  Weight: 70.306 kg

DRUGS (1)
  1. RECLAST [Suspect]

REACTIONS (7)
  - BONE PAIN [None]
  - INFLUENZA LIKE ILLNESS [None]
  - ARTHRITIS [None]
  - OESOPHAGITIS [None]
  - MYALGIA [None]
  - GASTROOESOPHAGEAL REFLUX DISEASE [None]
  - CONDITION AGGRAVATED [None]
